FAERS Safety Report 9127398 (Version 1)
Quarter: 2013Q1

REPORT INFORMATION
  Report Type: Spontaneous
  Country: US (occurrence: US)
  Receive Date: 20130228
  Receipt Date: 20130228
  Transmission Date: 20140127
  Serious: No
  Sender: FDA-Public Use
  Company Number: US-GLAXOSMITHKLINE-A0973234A

PATIENT
  Sex: Male

DRUGS (3)
  1. LAMICTAL [Suspect]
     Indication: CONVULSION
     Dosage: 550MG VARIABLE DOSE
     Route: 048
     Dates: start: 200604
  2. LAMOTRIGINE [Suspect]
     Indication: CONVULSION
     Dosage: 550MG VARIABLE DOSE
     Route: 048
     Dates: start: 201004, end: 201010
  3. NO CONCURRENT MEDICATION [Concomitant]

REACTIONS (7)
  - Tremor [Not Recovered/Not Resolved]
  - Mental impairment [Unknown]
  - Dizziness [Unknown]
  - Somnolence [Unknown]
  - Feeling abnormal [Unknown]
  - Anxiety [Unknown]
  - Anxiety [Unknown]
